FAERS Safety Report 7789367-4 (Version None)
Quarter: 2011Q3

REPORT INFORMATION
  Report Type: 
  Country: None (occurrence: None)
  Receive Date: 20110930
  Receipt Date: 20110920
  Transmission Date: 20111222
  Serious: Yes (Hospitalization)
  Sender: FDA-Public Use
  Company Number: IE-GLAXOSMITHKLINE-B0751415A

PATIENT
  Sex: Female
  Weight: 62.3 kg

DRUGS (5)
  1. DOCETAXEL [Suspect]
     Indication: BREAST CANCER
     Dosage: 120MG CYCLIC
     Route: 042
     Dates: start: 20110909
  2. LOPERAMIDE HCL [Concomitant]
     Dosage: 2MG AS REQUIRED
     Route: 048
     Dates: start: 20110911, end: 20110918
  3. LAPATINIB [Suspect]
     Indication: BREAST CANCER
     Dosage: 1000MG PER DAY
     Route: 048
     Dates: start: 20110909
  4. CARBOPLATIN [Suspect]
     Indication: BREAST CANCER
     Dosage: 670MG CYCLIC
     Route: 042
     Dates: start: 20110909
  5. DOMPERIDONE [Concomitant]
     Dosage: 20MG AS REQUIRED
     Route: 048
     Dates: start: 20110910

REACTIONS (1)
  - FEBRILE NEUTROPENIA [None]
